FAERS Safety Report 7618931-8 (Version None)
Quarter: 2011Q3

REPORT INFORMATION
  Report Type: 
  Country: None (occurrence: None)
  Receive Date: 20110718
  Receipt Date: 20110718
  Transmission Date: 20111222
  Serious: Yes (Other)
  Sender: FDA-Public Use
  Company Number: IE-PFIZER INC-2010136662

PATIENT
  Age: 25 Year
  Sex: Female
  Weight: 59 kg

DRUGS (3)
  1. SALBUTAMOL [Concomitant]
     Dosage: 1 - 2 PUFFS ON DEMAND
     Route: 055
     Dates: start: 20101015
  2. GALFER [Concomitant]
     Dosage: UNK
     Dates: start: 20101022
  3. VARENICLINE TARTRATE [Suspect]
     Indication: SMOKING CESSATION THERAPY
     Dosage: 1 MG, 2X/DAY
     Dates: start: 20100825, end: 20100901

REACTIONS (5)
  - NAUSEA [None]
  - MATERNAL EXPOSURE DURING PREGNANCY [None]
  - RESPIRATORY TRACT INFECTION [None]
  - CAESAREAN SECTION [None]
  - ANTEPARTUM HAEMORRHAGE [None]
